FAERS Safety Report 7581152-1 (Version None)
Quarter: 2011Q2

REPORT INFORMATION
  Report Type: 
  Country: None (occurrence: None)
  Receive Date: 20110629
  Receipt Date: 20110621
  Transmission Date: 20111010
  Serious: Yes (Other)
  Sender: FDA-Public Use
  Company Number: US-PFIZER INC-2011138551

PATIENT
  Sex: Male

DRUGS (6)
  1. TIMOLOL [Suspect]
     Indication: VISION BLURRED
  2. TIMOLOL [Suspect]
     Indication: GLAUCOMA
  3. XALATAN [Suspect]
     Indication: VISION BLURRED
     Dosage: UNK
  4. ALPHAGAN [Suspect]
     Indication: VISION BLURRED
     Dosage: UNK
  5. ALPHAGAN [Suspect]
     Indication: GLAUCOMA
  6. XALATAN [Suspect]
     Indication: GLAUCOMA

REACTIONS (4)
  - CHEST PAIN [None]
  - FLUID RETENTION [None]
  - CARDIAC FAILURE CONGESTIVE [None]
  - DYSPNOEA [None]
